FAERS Safety Report 15022589 (Version 1)
Quarter: 2018Q2

REPORT INFORMATION
  Report Type: Spontaneous
  Country: US (occurrence: US)
  Receive Date: 20180602
  Receipt Date: 20180602
  Transmission Date: 20180711
  Serious: Yes (Life-Threatening, Hospitalization)
  Sender: FDA-Public Use
  Company Number: None

PATIENT
  Age: 38 Year
  Sex: Female
  Weight: 58 kg

DRUGS (2)
  1. NIVOLUMAB [Suspect]
     Active Substance: NIVOLUMAB
     Indication: TONGUE NEOPLASM MALIGNANT STAGE UNSPECIFIED
     Dates: start: 20180531, end: 20180531
  2. NIVOLUMAB [Suspect]
     Active Substance: NIVOLUMAB
     Indication: THROAT CANCER
     Dates: start: 20180531, end: 20180531

REACTIONS (3)
  - Dyspnoea [None]
  - Laryngeal oedema [None]
  - Hypotension [None]

NARRATIVE: CASE EVENT DATE: 20180531
